FAERS Safety Report 18333936 (Version 36)
Quarter: 2023Q2

REPORT INFORMATION
  Report Type: Other
  Country: CA (occurrence: None)
  Receive Date: 20201001
  Receipt Date: 20230621
  Transmission Date: 20230721
  Serious: No
  Sender: FDA-Public Use
  Company Number: CA-ROCHE-2566062

PATIENT
  Sex: Male

DRUGS (5)
  1. OCREVUS [Suspect]
     Active Substance: OCRELIZUMAB
     Indication: Relapsing-remitting multiple sclerosis
     Dosage: 300 MG AT DAY 0 AND 14, THEN 600 MG EVERY 6 MONTH
     Route: 042
     Dates: start: 20200303
  2. OCREVUS [Suspect]
     Active Substance: OCRELIZUMAB
     Dosage: 300 MG AT DAY 0 AND 14, THEN 600 MG EVERY 6 MONTH
     Route: 042
  3. BIOTIN [Concomitant]
     Active Substance: BIOTIN
  4. TYLENOL [Concomitant]
     Active Substance: ACETAMINOPHEN
  5. ADVIL [Concomitant]
     Active Substance: IBUPROFEN

REACTIONS (34)
  - Respiratory disorder [Not Recovered/Not Resolved]
  - Rhinorrhoea [Not Recovered/Not Resolved]
  - Increased upper airway secretion [Unknown]
  - Dyspnoea [Not Recovered/Not Resolved]
  - Nasopharyngitis [Not Recovered/Not Resolved]
  - Ear discomfort [Not Recovered/Not Resolved]
  - Fatigue [Not Recovered/Not Resolved]
  - Nasal congestion [Recovering/Resolving]
  - Ear disorder [Recovering/Resolving]
  - Throat irritation [Not Recovered/Not Resolved]
  - Pain [Recovering/Resolving]
  - Pharyngitis streptococcal [Recovering/Resolving]
  - Sneezing [Recovering/Resolving]
  - Tooth disorder [Unknown]
  - Acne [Recovering/Resolving]
  - Dysphonia [Recovering/Resolving]
  - Influenza [Recovered/Resolved]
  - Dry throat [Recovering/Resolving]
  - Cough [Not Recovered/Not Resolved]
  - Tremor [Unknown]
  - Muscular weakness [Not Recovered/Not Resolved]
  - Asthenia [Not Recovered/Not Resolved]
  - Infection [Unknown]
  - Fall [Unknown]
  - Back pain [Not Recovered/Not Resolved]
  - Tonsillitis [Not Recovered/Not Resolved]
  - Dysuria [Not Recovered/Not Resolved]
  - Oropharyngeal pain [Unknown]
  - Paranasal sinus discomfort [Not Recovered/Not Resolved]
  - Productive cough [Not Recovered/Not Resolved]
  - Dry skin [Unknown]
  - Rash [Unknown]
  - Weight increased [Unknown]
  - Frustration tolerance decreased [Unknown]
